FAERS Safety Report 4444402-6 (Version None)
Quarter: 2004Q3

REPORT INFORMATION
  Report Type: 
  Country: None (occurrence: None)
  Receive Date: 20040902
  Receipt Date: 20040816
  Transmission Date: 20050211
  Serious: Yes (Hospitalization, Other)
  Sender: FDA-Public Use
  Company Number: US_010361399

PATIENT
  Age: 75 Year
  Sex: Male
  Weight: 50 kg

DRUGS (3)
  1. HUMULIN L [Suspect]
     Indication: DIABETES MELLITUS
     Dosage: 16 U/IN THE MORNING
     Dates: start: 19900101
  2. HUMULIN R [Suspect]
     Indication: DIABETES MELLITUS
     Dates: start: 19990101
  3. HUMULIN U [Suspect]
     Indication: DIABETES MELLITUS
     Dosage: 16 U/IN THE MORNING
     Dates: start: 19920101

REACTIONS (17)
  - ABDOMINAL HERNIA [None]
  - BALANCE DISORDER [None]
  - BENIGN NEOPLASM [None]
  - BLOOD GLUCOSE DECREASED [None]
  - BLOOD GLUCOSE INCREASED [None]
  - BLOOD POTASSIUM INCREASED [None]
  - DIZZINESS [None]
  - DRUG INEFFECTIVE [None]
  - GASTRIC DISORDER [None]
  - HYPERHIDROSIS [None]
  - HYPOACUSIS [None]
  - HYPOGLYCAEMIA UNAWARENESS [None]
  - MICTURITION FREQUENCY DECREASED [None]
  - NAUSEA [None]
  - RENAL DISORDER [None]
  - TREMOR [None]
  - WEIGHT DECREASED [None]
